FAERS Safety Report 13318547 (Version 1)
Quarter: 2017Q1

REPORT INFORMATION
  Report Type: Spontaneous
  Country: PL (occurrence: PL)
  Receive Date: 20170310
  Receipt Date: 20170310
  Transmission Date: 20170428
  Serious: Yes (Hospitalization)
  Sender: FDA-Public Use
  Company Number: PL-JNJFOC-20170307735

PATIENT
  Age: 83 Year
  Sex: Male
  Weight: 70 kg

DRUGS (2)
  1. XARELTO [Suspect]
     Active Substance: RIVAROXABAN
     Indication: ATRIAL FIBRILLATION
     Route: 048
     Dates: end: 20161205
  2. XARELTO [Suspect]
     Active Substance: RIVAROXABAN
     Indication: ATRIAL FLUTTER
     Route: 048
     Dates: end: 20161205

REACTIONS (5)
  - Ulcer [Recovering/Resolving]
  - Mouth haemorrhage [Recovering/Resolving]
  - Palatal ulcer [Recovering/Resolving]
  - Tongue ulceration [Recovering/Resolving]
  - Tongue haemorrhage [Recovering/Resolving]

NARRATIVE: CASE EVENT DATE: 201610
